FAERS Safety Report 5747158-X (Version None)
Quarter: 2008Q2

REPORT INFORMATION
  Report Type: 
  Country: None (occurrence: None)
  Receive Date: 20080520
  Receipt Date: 20080504
  Transmission Date: 20081010
  Serious: Yes (Hospitalization)
  Sender: FDA-Public Use
  Company Number: MPS1-1000057

PATIENT
  Age: 4 Year
  Sex: Male

DRUGS (1)
  1. ALDURAZYME [Suspect]
     Indication: MUCOPOLYSACCHARIDOSIS I
     Dosage: INTRAVENOUS
     Route: 042
     Dates: start: 20051201

REACTIONS (4)
  - ASPIRATION [None]
  - CONVULSION [None]
  - FALL [None]
  - PYREXIA [None]
